FAERS Safety Report 18067082 (Version 3)
Quarter: 2020Q4

REPORT INFORMATION
  Report Type: Report from Study
  Country: CA (occurrence: CA)
  Receive Date: 20200724
  Receipt Date: 20201014
  Transmission Date: 20210113
  Serious: Yes (Hospitalization, Other)
  Sender: FDA-Public Use
  Company Number: CA-JNJFOC-20200612254

PATIENT
  Age: 53 Year
  Sex: Female

DRUGS (2)
  1. REMICADE [Suspect]
     Active Substance: INFLIXIMAB
     Indication: CROHN^S DISEASE
     Route: 042
     Dates: start: 20191004
  2. REMICADE [Suspect]
     Active Substance: INFLIXIMAB
     Route: 042
     Dates: start: 20190410

REACTIONS (7)
  - Crohn^s disease [Unknown]
  - Incision site haemorrhage [Recovering/Resolving]
  - Product dose omission issue [Unknown]
  - Intestinal resection [Unknown]
  - Incision site discharge [Recovering/Resolving]
  - Post procedural complication [Recovered/Resolved]
  - Stoma site infection [Not Recovered/Not Resolved]

NARRATIVE: CASE EVENT DATE: 20200618
